FAERS Safety Report 4542937-9 (Version None)
Quarter: 2004Q4

REPORT INFORMATION
  Report Type: 
  Country: None (occurrence: None)
  Receive Date: 20041229
  Receipt Date: 20041123
  Transmission Date: 20050328
  Serious: Yes (Other)
  Sender: FDA-Public Use
  Company Number: 2004100469

PATIENT
  Sex: Female
  Weight: 53.0709 kg

DRUGS (3)
  1. VALDECOXIB [Suspect]
     Indication: ARTHRITIS
     Dosage: 10 MG (10 MG, DAILY INTERVAL: EVERY DAY)  : 20 MG (DAILY)
     Dates: start: 20040301, end: 20041101
  2. VALDECOXIB [Suspect]
     Indication: ARTHRITIS
     Dosage: 10 MG (10 MG, DAILY INTERVAL: EVERY DAY)  : 20 MG (DAILY)
     Dates: start: 20041123
  3. ACETAMINOPHEN [Concomitant]

REACTIONS (2)
  - CHEST PAIN [None]
  - PAIN [None]
